FAERS Safety Report 10661868 (Version 2)
Quarter: 2014Q4

REPORT INFORMATION
  Report Type: Spontaneous
  Country: DE (occurrence: DE)
  Receive Date: 20141218
  Receipt Date: 20141218
  Transmission Date: 20150529
  Serious: Yes (Other)
  Sender: FDA-Public Use
  Company Number: DE-JNJFOC-20141020096

PATIENT
  Sex: Male

DRUGS (4)
  1. UROKINASE [Concomitant]
     Active Substance: UROKINASE
     Indication: VENOUS THROMBOSIS LIMB
     Route: 065
  2. XARELTO [Suspect]
     Active Substance: RIVAROXABAN
     Indication: EMBOLISM VENOUS
     Route: 048
     Dates: start: 201406
  3. XARELTO [Suspect]
     Active Substance: RIVAROXABAN
     Indication: DEEP VEIN THROMBOSIS
     Route: 048
     Dates: start: 201406
  4. HEPARIN [Concomitant]
     Active Substance: HEPARIN SODIUM
     Indication: VENOUS THROMBOSIS LIMB
     Route: 065

REACTIONS (1)
  - Alopecia [Unknown]
